FAERS Safety Report 7118190-9 (Version None)
Quarter: 2010Q4

REPORT INFORMATION
  Report Type: 
  Country: None (occurrence: None)
  Receive Date: 20101123
  Receipt Date: 20101111
  Transmission Date: 20110411
  Serious: Yes (Hospitalization)
  Sender: FDA-Public Use
  Company Number: JP-GENZYME-THYM-1001390

PATIENT
  Sex: Male
  Weight: 73 kg

DRUGS (6)
  1. THYMOGLOBULIN [Suspect]
     Indication: MYELODYSPLASTIC SYNDROME
     Dosage: 250 MG, QD
     Route: 042
     Dates: start: 20091215, end: 20091215
  2. METHYLPREDNISOLONE SODIUM SUCCINATE [Concomitant]
     Indication: PRODUCT USED FOR UNKNOWN INDICATION
     Dosage: 125 UNK, QD
     Route: 042
  3. FILGRASTIM [Concomitant]
     Indication: PRODUCT USED FOR UNKNOWN INDICATION
     Dosage: 300 UNK, QD
     Route: 042
  4. CYCLOSPORINE [Concomitant]
     Indication: MYELODYSPLASTIC SYNDROME
     Dosage: UNK
     Dates: start: 20090807
  5. NIZATIDINE [Concomitant]
     Indication: MYELODYSPLASTIC SYNDROME
     Dosage: UNK
     Dates: start: 20091229
  6. DEFERASIROX [Concomitant]
     Indication: MYELODYSPLASTIC SYNDROME
     Dosage: UNK
     Dates: start: 20100423

REACTIONS (2)
  - HYPERTHERMIA [None]
  - TREMOR [None]
